FAERS Safety Report 16711805 (Version 1)
Quarter: 2019Q3

REPORT INFORMATION
  Report Type: Spontaneous
  Country: US (occurrence: US)
  Receive Date: 20190816
  Receipt Date: 20190816
  Transmission Date: 20191004
  Serious: Yes (Hospitalization, Other)
  Sender: FDA-Public Use
  Company Number: US-SA-2019SA225892

PATIENT
  Age: 78 Year
  Sex: Female

DRUGS (13)
  1. PRALUENT [Suspect]
     Active Substance: ALIROCUMAB
     Dosage: 150 MG, QOW
     Route: 058
     Dates: start: 20180531
  2. FUROSEMIDE. [Concomitant]
     Active Substance: FUROSEMIDE
  3. PLAVIX [Concomitant]
     Active Substance: CLOPIDOGREL BISULFATE
  4. CALCIUM [Concomitant]
     Active Substance: CALCIUM
  5. ASPIRIN [ACETYLSALICYLIC ACID] [Concomitant]
     Active Substance: ASPIRIN
  6. TYLENOL [Concomitant]
     Active Substance: ACETAMINOPHEN
  7. RANEXA [Concomitant]
     Active Substance: RANOLAZINE
  8. SODIUM BICARBONATE. [Concomitant]
     Active Substance: SODIUM BICARBONATE
  9. VALSARTAN. [Concomitant]
     Active Substance: VALSARTAN
  10. XALATAN [Concomitant]
     Active Substance: LATANOPROST
  11. COLACE [Concomitant]
     Active Substance: DOCUSATE SODIUM
  12. IMDUR [Concomitant]
     Active Substance: ISOSORBIDE MONONITRATE
  13. PROTONIX [OMEPRAZOLE] [Concomitant]
     Active Substance: OMEPRAZOLE

REACTIONS (1)
  - Coronary artery surgery [Unknown]
